FAERS Safety Report 18130100 (Version 1)
Quarter: 2020Q3

REPORT INFORMATION
  Report Type: Spontaneous
  Country: DK (occurrence: DK)
  Receive Date: 20200810
  Receipt Date: 20200810
  Transmission Date: 20201103
  Serious: Yes (Hospitalization)
  Sender: FDA-Public Use
  Company Number: DK-009507513-2008DNK000877

PATIENT
  Age: 73 Year
  Sex: Female

DRUGS (1)
  1. KEYTRUDA [Suspect]
     Active Substance: PEMBROLIZUMAB
     Indication: RETINAL MELANOCYTOMA
     Dosage: UNK
     Route: 042
     Dates: start: 20200705

REACTIONS (5)
  - Ketoacidosis [Unknown]
  - Diabetes mellitus [Unknown]
  - Pancreatitis [Unknown]
  - Thirst [Unknown]
  - Fatigue [Unknown]

NARRATIVE: CASE EVENT DATE: 202007
